FAERS Safety Report 18830581 (Version 1)
Quarter: 2021Q1

REPORT INFORMATION
  Report Type: Spontaneous
  Country: US (occurrence: US)
  Receive Date: 20210201
  Receipt Date: 20210201
  Transmission Date: 20210419
  Serious: No
  Sender: FDA-Public Use
  Company Number: US-ABBVIE-20K-163-3668915-00

PATIENT
  Age: 64 Year
  Sex: Female
  Weight: 89.89 kg

DRUGS (3)
  1. PREDNISONE  (NON?ABBVIE) [Concomitant]
     Indication: POLYMYALGIA RHEUMATICA
  2. HUMIRA [Suspect]
     Active Substance: ADALIMUMAB
     Indication: RHEUMATOID ARTHRITIS
     Route: 058
     Dates: start: 20200624
  3. PREDNISONE  (NON?ABBVIE) [Concomitant]
     Indication: RHEUMATOID ARTHRITIS

REACTIONS (2)
  - Device issue [Unknown]
  - Injection site haemorrhage [Recovered/Resolved]

NARRATIVE: CASE EVENT DATE: 2020
